FAERS Safety Report 17634738 (Version 3)
Quarter: 2024Q4

REPORT INFORMATION
  Report Type: Spontaneous
  Country: FR (occurrence: FR)
  Receive Date: 20200406
  Receipt Date: 20241203
  Transmission Date: 20250115
  Serious: Yes (Hospitalization, Other)
  Sender: MERCK
  Company Number: FR-009507513-2004FRA000625

PATIENT
  Age: 59 Year
  Sex: Male

DRUGS (2)
  1. PEMBROLIZUMAB [Suspect]
     Active Substance: PEMBROLIZUMAB
     Indication: Lung carcinoma cell type unspecified stage IV
     Dosage: 2 MILLIGRAM/KILOGRAM, SINGLE INJECTION
  2. NIVOLUMAB [Suspect]
     Active Substance: NIVOLUMAB
     Indication: Lung carcinoma cell type unspecified stage IV
     Dosage: 3 MILLIGRAM/KILOGRAM, QD (FIVE INJECTIONS)

REACTIONS (2)
  - Renal tubular acidosis [Recovered/Resolved]
  - Tubulointerstitial nephritis [Recovered/Resolved]
